FAERS Safety Report 13296833 (Version 2)
Quarter: 2017Q2

REPORT INFORMATION
  Report Type: Spontaneous
  Country: CO (occurrence: CO)
  Receive Date: 20170306
  Receipt Date: 20170408
  Transmission Date: 20170830
  Serious: Yes (Other)
  Sender: FDA-Public Use
  Company Number: CO-AMGEN-COLSP2017034127

PATIENT
  Age: 62 Year
  Sex: Female

DRUGS (2)
  1. ENBREL [Suspect]
     Active Substance: ETANERCEPT
     Indication: RHEUMATOID ARTHRITIS
     Dosage: 50 MG, WEEKLY
     Route: 058
     Dates: start: 20030303
  2. METOTREXATE [Concomitant]
     Active Substance: METHOTREXATE SODIUM
     Dosage: UNK
     Dates: start: 2007

REACTIONS (1)
  - Joint dislocation [Unknown]
